FAERS Safety Report 7168820-0 (Version None)
Quarter: 2010Q4

REPORT INFORMATION
  Report Type: 
  Country: None (occurrence: None)
  Receive Date: 20101216
  Receipt Date: 20100303
  Transmission Date: 20110411
  Serious: No
  Sender: FDA-Public Use
  Company Number: US-AMGEN-TCS385543

PATIENT

DRUGS (5)
  1. ENBREL [Suspect]
     Indication: PSORIASIS
     Dosage: 50 MG, 2 TIMES/WK
     Route: 058
     Dates: start: 20080101
  2. EFALIZUMAB [Concomitant]
     Dosage: UNK UNK, UNK
     Dates: start: 20080101
  3. CYCLOSPORINE [Concomitant]
     Dosage: 25 MG, BID
     Route: 048
     Dates: start: 20090325
  4. LEVOTHYROXINE SODIUM [Concomitant]
  5. ESCITALOPRAM [Concomitant]

REACTIONS (7)
  - ALOPECIA [None]
  - INJECTION SITE ERYTHEMA [None]
  - INJECTION SITE HAEMATOMA [None]
  - INJECTION SITE PRURITUS [None]
  - INJECTION SITE REACTION [None]
  - PSORIASIS [None]
  - WHITE BLOOD CELL COUNT INCREASED [None]
